FAERS Safety Report 20905726 (Version 1)
Quarter: 2022Q2

REPORT INFORMATION
  Report Type: Spontaneous
  Country: ES (occurrence: ES)
  Receive Date: 20220602
  Receipt Date: 20220602
  Transmission Date: 20220721
  Serious: Yes (Life-Threatening, Hospitalization)
  Sender: FDA-Public Use
  Company Number: None

PATIENT
  Age: 78 Year
  Sex: Male

DRUGS (2)
  1. METFORMIN [Interacting]
     Active Substance: METFORMIN HYDROCHLORIDE
     Indication: Diabetes mellitus
     Dosage: UNIT DOSE : 850 MG, FREQUENCY TIME : 2  DAYS, THERAPY DURATION : 3602  DAYS, (1359A)
     Route: 048
     Dates: start: 20120301, end: 20220109
  2. HYDROCHLOROTHIAZIDE\LOSARTAN [Interacting]
     Active Substance: HYDROCHLOROTHIAZIDE\LOSARTAN
     Indication: Hypertension
     Dosage: UNIT DOSE : 1 DOSAGE FORMS , FREQUENCY TIME : 1 DAYS, THERAPY DURATION : 3265 DAYS
     Route: 048
     Dates: start: 20130201, end: 20220109

REACTIONS (2)
  - Lactic acidosis [Recovered/Resolved]
  - Drug interaction [Unknown]

NARRATIVE: CASE EVENT DATE: 20220109
